FAERS Safety Report 5385987-5 (Version None)
Quarter: 2007Q3

REPORT INFORMATION
  Report Type: 
  Country: None (occurrence: None)
  Receive Date: 20070709
  Receipt Date: 20070627
  Transmission Date: 20080115
  Serious: Yes (Other)
  Sender: FDA-Public Use
  Company Number: 2007SP012152

PATIENT
  Age: 64 Year
  Sex: Male
  Weight: 60 kg

DRUGS (5)
  1. NOXAFIL [Suspect]
     Indication: PULMONARY MYCOSIS
     Dosage: SEE IMAGE
     Route: 048
     Dates: start: 20061201, end: 20070401
  2. NOXAFIL [Suspect]
     Indication: PULMONARY MYCOSIS
     Dosage: SEE IMAGE
     Route: 048
     Dates: start: 20070401
  3. PURINETHOL [Concomitant]
     Indication: SPLENIC INFECTION FUNGAL
  4. BACTRIM [Concomitant]
  5. ZELITREX [Concomitant]

REACTIONS (3)
  - AREFLEXIA [None]
  - NEUROPATHY PERIPHERAL [None]
  - PARAESTHESIA [None]
